FAERS Safety Report 7263541-8 (Version None)
Quarter: 2011Q1

REPORT INFORMATION
  Report Type: 
  Country: None (occurrence: None)
  Receive Date: 20110130
  Receipt Date: 20101025
  Transmission Date: 20110831
  Serious: No
  Sender: FDA-Public Use
  Company Number: US-ABBOTT-10P-163-0682036-00

PATIENT
  Sex: Female
  Weight: 65.83 kg

DRUGS (6)
  1. VICODIN [Concomitant]
     Indication: PAIN
     Dosage: 3 TO 4 TIMES A DAY
  2. CYMBALTA [Concomitant]
     Indication: DEPRESSION
  3. XANAX [Concomitant]
     Indication: ANXIETY
  4. LISINOPRIL [Concomitant]
     Indication: HYPERTENSION
  5. CALCIUM,MAGNESIUM, AND D3 [Concomitant]
     Indication: PRODUCT USED FOR UNKNOWN INDICATION
  6. HUMIRA [Suspect]
     Indication: PSORIATIC ARTHROPATHY
     Dates: start: 20100801

REACTIONS (6)
  - COUGH [None]
  - VOMITING [None]
  - INJECTION SITE PAIN [None]
  - INFLUENZA LIKE ILLNESS [None]
  - INJECTION SITE ERYTHEMA [None]
  - DEVICE MALFUNCTION [None]
